FAERS Safety Report 6894371-4 (Version None)
Quarter: 2010Q3

REPORT INFORMATION
  Report Type: 
  Country: None (occurrence: None)
  Receive Date: 20100802
  Receipt Date: 20100720
  Transmission Date: 20110219
  Serious: Yes (Hospitalization, Other)
  Sender: FDA-Public Use
  Company Number: AU-PAR PHARMACEUTICAL, INC-2010SCPR001955

PATIENT

DRUGS (1)
  1. IBUPROFEN [Suspect]
     Indication: BACK PAIN
     Dosage: HIGH DOSE
     Route: 065

REACTIONS (9)
  - DEHYDRATION [None]
  - DUODENAL STENOSIS [None]
  - GASTRIC ULCER [None]
  - HYPOPHAGIA [None]
  - IRON DEFICIENCY ANAEMIA [None]
  - MALNUTRITION [None]
  - NAUSEA [None]
  - VOMITING [None]
  - WEIGHT DECREASED [None]
